FAERS Safety Report 9290154 (Version 2)
Quarter: 2013Q2

REPORT INFORMATION
  Report Type: Spontaneous
  Country: GB (occurrence: GB)
  Receive Date: 20130515
  Receipt Date: 20130628
  Transmission Date: 20140414
  Serious: No
  Sender: FDA-Public Use
  Company Number: GB-PFIZER INC-2013146365

PATIENT
  Age: 21 Year
  Sex: Male

DRUGS (2)
  1. LYRICA [Suspect]
     Indication: GOUT
     Dosage: 150 MG, 2X/DAY
     Dates: start: 20130115
  2. LYRICA [Suspect]
     Indication: BACK PAIN

REACTIONS (1)
  - Off label use [Unknown]
